FAERS Safety Report 14535638 (Version 1)
Quarter: 2018Q1

REPORT INFORMATION
  Report Type: Spontaneous
  Country: US (occurrence: US)
  Receive Date: 20180215
  Receipt Date: 20180215
  Transmission Date: 20180509
  Serious: No
  Sender: FDA-Public Use
  Company Number: US-LEXICON PHARMACEUTICALS, INC-18-1606-00068

PATIENT
  Age: 78 Year
  Sex: Female

DRUGS (16)
  1. TRAMADOL. [Concomitant]
     Active Substance: TRAMADOL
  2. ZOFRAN [Concomitant]
     Active Substance: ONDANSETRON HYDROCHLORIDE
  3. LASIX [Concomitant]
     Active Substance: FUROSEMIDE
  4. ASPIRIN. [Concomitant]
     Active Substance: ASPIRIN
  5. LISINOPRIL. [Concomitant]
     Active Substance: LISINOPRIL
  6. ALLOPURINOL. [Concomitant]
     Active Substance: ALLOPURINOL
  7. CALCIUM CARB-CHOLECALCIFEROL [Concomitant]
  8. ZYRTEC [Concomitant]
     Active Substance: CETIRIZINE HYDROCHLORIDE
  9. VESICARE [Concomitant]
     Active Substance: SOLIFENACIN SUCCINATE
  10. PROCHLORPERAZINE. [Concomitant]
     Active Substance: PROCHLORPERAZINE
  11. SILVER NITRATE. [Concomitant]
     Active Substance: SILVER NITRATE
  12. PROCRIT [Concomitant]
     Active Substance: ERYTHROPOIETIN
  13. TELOTRISTAT ETHYL [Suspect]
     Active Substance: TELOTRISTAT ETHYL
     Indication: ENDOMETRIAL CANCER
     Route: 048
     Dates: start: 20171114
  14. PROCARDIA [Concomitant]
     Active Substance: NIFEDIPINE
  15. PANTOPRAZOLE SODIUM. [Concomitant]
     Active Substance: PANTOPRAZOLE SODIUM
  16. OCTREOTIDE. [Concomitant]
     Active Substance: OCTREOTIDE

REACTIONS (1)
  - Gastrointestinal motility disorder [Not Recovered/Not Resolved]

NARRATIVE: CASE EVENT DATE: 201711
